FAERS Safety Report 15954068 (Version 3)
Quarter: 2019Q2

REPORT INFORMATION
  Report Type: Spontaneous
  Country: BE (occurrence: BE)
  Receive Date: 20190212
  Receipt Date: 20190415
  Transmission Date: 20190711
  Serious: Yes (Death, Other)
  Sender: FDA-Public Use
  Company Number: BE-ELI_LILLY_AND_COMPANY-BE201902004364

PATIENT
  Age: 22 Year
  Sex: Male
  Weight: 43 kg

DRUGS (2)
  1. SOMATROPIN. [Suspect]
     Active Substance: SOMATROPIN
     Indication: BODY HEIGHT BELOW NORMAL
     Dosage: UNK UNK, DAILY
     Route: 065
  2. SOMATROPIN. [Suspect]
     Active Substance: SOMATROPIN
     Indication: NOONAN SYNDROME

REACTIONS (3)
  - Oligoastrocytoma [Recovered/Resolved]
  - Off label use [Unknown]
  - Glioblastoma [Fatal]

NARRATIVE: CASE EVENT DATE: 20130530
